FAERS Safety Report 24754919 (Version 2)
Quarter: 2024Q4

REPORT INFORMATION
  Report Type: Spontaneous
  Country: CN (occurrence: CN)
  Receive Date: 20241219
  Receipt Date: 20241223
  Transmission Date: 20250115
  Serious: Yes (Hospitalization)
  Sender: NOVARTIS
  Company Number: CN-002147023-NVSC2024CN240320

PATIENT
  Age: 48 Year
  Sex: Male

DRUGS (1)
  1. COSENTYX [Suspect]
     Active Substance: SECUKINUMAB
     Indication: Psoriasis
     Dosage: UNK
     Route: 065
     Dates: start: 202410, end: 2024

REACTIONS (14)
  - Eczema [Unknown]
  - Rash pustular [Unknown]
  - Blister [Unknown]
  - Blister rupture [Unknown]
  - Oral mucosal blistering [Unknown]
  - Feeding disorder [Unknown]
  - Speech disorder [Unknown]
  - Weight decreased [Unknown]
  - Immune system disorder [Unknown]
  - Psoriasis [Unknown]
  - Purulence [Unknown]
  - Tongue disorder [Unknown]
  - Erythema [Unknown]
  - Pruritus [Unknown]

NARRATIVE: CASE EVENT DATE: 20241101
